FAERS Safety Report 24105065 (Version 1)
Quarter: 2024Q3

REPORT INFORMATION
  Report Type: Spontaneous
  Country: US (occurrence: US)
  Receive Date: 20240717
  Receipt Date: 20240717
  Transmission Date: 20241016
  Serious: Yes (Hospitalization, Other)
  Sender: DR REDDYS
  Company Number: None

PATIENT
  Age: 86 Year
  Sex: Male

DRUGS (11)
  1. HEPARIN [Suspect]
     Active Substance: HEPARIN SODIUM
     Indication: Prophylaxis
  2. FUROSEMIDE [Concomitant]
     Active Substance: FUROSEMIDE
     Indication: Hypertension
  3. AMLODIPINE [Concomitant]
     Active Substance: AMLODIPINE BESYLATE
     Indication: Hypertension
  4. SPIRONOLACTONE [Concomitant]
     Active Substance: SPIRONOLACTONE
     Indication: Hypertension
  5. INSULIN NOS [Concomitant]
     Active Substance: INSULIN NOS
     Indication: Hyperglycaemic hyperosmolar nonketotic syndrome
     Dosage: DRIP
  6. INSULIN NOS [Concomitant]
     Active Substance: INSULIN NOS
     Indication: Diabetic ketoacidosis
  7. ASPIRIN [Concomitant]
     Active Substance: ASPIRIN
     Indication: Cerebral infarction
  8. ASPIRIN [Concomitant]
     Active Substance: ASPIRIN
     Indication: Hemiparesis
  9. ASPIRIN [Concomitant]
     Active Substance: ASPIRIN
     Indication: Embolic stroke
  10. ATORVASTATIN [Concomitant]
     Active Substance: ATORVASTATIN
     Indication: Hyperlipidaemia
  11. ATORVASTATIN [Concomitant]
     Active Substance: ATORVASTATIN
     Dosage: DOSE WAS INCREASED

REACTIONS (1)
  - Gastrointestinal haemorrhage [Unknown]
